FAERS Safety Report 6578003-0 (Version None)
Quarter: 2010Q1

REPORT INFORMATION
  Report Type: 
  Country: None (occurrence: None)
  Receive Date: 20100211
  Receipt Date: 20091021
  Transmission Date: 20100710
  Serious: Yes (Hospitalization, Other)
  Sender: FDA-Public Use
  Company Number: US-BRISTOL-MYERS SQUIBB COMPANY-14825376

PATIENT
  Age: 51 Year
  Sex: Female

DRUGS (6)
  1. IXEMPRA KIT [Suspect]
     Indication: BREAST CANCER METASTATIC
     Dates: start: 20091015
  2. XELODA [Suspect]
  3. LUPRON [Concomitant]
  4. CIMETIDINE [Concomitant]
     Indication: PREMEDICATION
  5. BENADRYL [Concomitant]
     Indication: PREMEDICATION
  6. ZOFRAN [Concomitant]
     Indication: PREMEDICATION

REACTIONS (3)
  - COLITIS [None]
  - ILEUS [None]
  - NEUTROPENIA [None]
